FAERS Safety Report 11247786 (Version 4)
Quarter: 2016Q1

REPORT INFORMATION
  Report Type: Spontaneous
  Country: US (occurrence: US)
  Receive Date: 20150708
  Receipt Date: 20160218
  Transmission Date: 20160525
  Serious: No
  Sender: FDA-Public Use
  Company Number: US-PFIZER INC-2015226012

PATIENT
  Age: 50 Year
  Sex: Female
  Weight: 109 kg

DRUGS (1)
  1. XELJANZ [Suspect]
     Active Substance: TOFACITINIB CITRATE
     Indication: RHEUMATOID ARTHRITIS
     Dosage: 5 MG, 2X/DAY
     Route: 048
     Dates: start: 201503, end: 20150706

REACTIONS (2)
  - Herpes zoster [Not Recovered/Not Resolved]
  - Sciatic nerve injury [Recovering/Resolving]

NARRATIVE: CASE EVENT DATE: 20150704
